FAERS Safety Report 5060319-0 (Version None)
Quarter: 2006Q3

REPORT INFORMATION
  Report Type: 
  Country: None (occurrence: None)
  Receive Date: 20060718
  Receipt Date: 20060703
  Transmission Date: 20061208
  Serious: Yes (Other)
  Sender: FDA-Public Use
  Company Number: PHBS2006US09900

PATIENT
  Age: 59 Year
  Sex: Male

DRUGS (5)
  1. CYCLOSPORINE [Suspect]
     Indication: STEM CELL TRANSPLANT
     Dosage: 3 MG/KG/D, INTRAVENOUS
     Route: 042
  2. CYCLOSPORINE [Suspect]
     Indication: STEM CELL TRANSPLANT
     Dosage: ORAL
     Route: 048
  3. GLUCOCORTICOSTROIDS (NO INGREDIENTS/SUBSTANCEE) [Concomitant]
  4. CYCLOPHOSPHAMIDE [Concomitant]
  5. FLUDARABINE PHOSPHATE [Concomitant]

REACTIONS (4)
  - ACUTE GRAFT VERSUS HOST DISEASE IN INTESTINE [None]
  - ACUTE GRAFT VERSUS HOST DISEASE IN SKIN [None]
  - OBLITERATIVE BRONCHIOLITIS [None]
  - SUPERFICIAL SPREADING MELANOMA STAGE II [None]
